FAERS Safety Report 8817276 (Version 6)
Quarter: 2013Q1

REPORT INFORMATION
  Report Type: Report from Study
  Country: US (occurrence: US)
  Receive Date: 20121004
  Receipt Date: 20130329
  Transmission Date: 20140127
  Serious: Yes (Hospitalization)
  Sender: FDA-Public Use
  Company Number: US-ABBOTT-12P-163-0989160-00

PATIENT
  Age: 55 Year
  Sex: Male

DRUGS (4)
  1. HUMIRA [Suspect]
     Indication: PSORIATIC ARTHROPATHY
     Route: 058
     Dates: start: 20100312, end: 20120303
  2. HYDROPHYLIC [Concomitant]
     Indication: PSORIASIS
     Dates: start: 20040422
  3. TRIAMCINOLONE [Concomitant]
     Indication: PSORIASIS
     Dates: start: 20021127
  4. DOVONEX [Concomitant]
     Indication: PSORIASIS
     Dates: start: 20100604

REACTIONS (2)
  - Meningioma [Recovered/Resolved]
  - Convulsion [Recovered/Resolved]
